FAERS Safety Report 20085055 (Version 1)
Quarter: 2021Q4

REPORT INFORMATION
  Report Type: Spontaneous
  Country: US (occurrence: US)
  Receive Date: 20211118
  Receipt Date: 20211118
  Transmission Date: 20220303
  Serious: Yes (Life-Threatening, Hospitalization)
  Sender: FDA-Public Use
  Company Number: US-JNJFOC-20211118489

PATIENT
  Age: 38 Year
  Sex: Female
  Weight: 80 kg

DRUGS (3)
  1. ACETAMINOPHEN [Suspect]
     Active Substance: ACETAMINOPHEN
     Indication: Suicide attempt
     Dosage: TOTAL DOSE OF 10000 MG OF ACETAMINOPHEN ON 25/MAY/1999
     Route: 048
  2. ZOLOFT [Concomitant]
     Active Substance: SERTRALINE HYDROCHLORIDE
     Indication: Product used for unknown indication
     Route: 065
  3. LITHIUM [Concomitant]
     Active Substance: LITHIUM
     Indication: Product used for unknown indication
     Route: 065

REACTIONS (7)
  - Suicide attempt [Unknown]
  - Arrhythmia [Unknown]
  - Chest X-ray abnormal [Unknown]
  - Splenomegaly [Unknown]
  - Alpha haemolytic streptococcal infection [Unknown]
  - Acute hepatic failure [Unknown]
  - Intentional overdose [Unknown]

NARRATIVE: CASE EVENT DATE: 19990526
